FAERS Safety Report 23823081 (Version 2)
Quarter: 2024Q2

REPORT INFORMATION
  Report Type: Other
  Country: FR (occurrence: FR)
  Receive Date: 20240507
  Receipt Date: 20240522
  Transmission Date: 20240716
  Serious: Yes (Hospitalization)
  Sender: FDA-Public Use
  Company Number: None

PATIENT
  Age: 61 Year
  Sex: Male
  Weight: 61 kg

DRUGS (1)
  1. IBUPROFEN [Suspect]
     Active Substance: IBUPROFEN
     Indication: Neck pain
     Dosage: UNK
     Route: 048
     Dates: start: 20240326, end: 20240328

REACTIONS (5)
  - Mediastinitis [Recovered/Resolved]
  - Pharyngeal abscess [Recovered/Resolved]
  - Abscess neck [Recovered/Resolved]
  - Pleurisy [Recovered/Resolved]
  - Intervertebral discitis [Recovered/Resolved]

NARRATIVE: CASE EVENT DATE: 20240328
